FAERS Safety Report 12540027 (Version 1)
Quarter: 2016Q3

REPORT INFORMATION
  Report Type: Spontaneous
  Country: US (occurrence: None)
  Receive Date: 20160707
  Receipt Date: 20160707
  Transmission Date: 20161109
  Serious: No
  Sender: FDA-Public Use
  Company Number: None

PATIENT
  Age: 31 Year
  Sex: Female

DRUGS (1)
  1. ENOXAPARIN SYR 150/1ML [Suspect]
     Active Substance: ENOXAPARIN SODIUM

REACTIONS (2)
  - Injection site bruising [None]
  - Injection site nodule [None]

NARRATIVE: CASE EVENT DATE: 20160706
